FAERS Safety Report 7071366-1 (Version None)
Quarter: 2010Q4

REPORT INFORMATION
  Report Type: 
  Country: None (occurrence: None)
  Receive Date: 20101029
  Receipt Date: 20101019
  Transmission Date: 20110411
  Serious: Yes (Other)
  Sender: FDA-Public Use
  Company Number: US-JNJFOC-20101005395

PATIENT
  Age: 29 Year
  Sex: Male
  Weight: 95.26 kg

DRUGS (1)
  1. STELARA [Suspect]
     Indication: PSORIASIS
     Route: 058

REACTIONS (3)
  - HEADACHE [None]
  - LIVER FUNCTION TEST ABNORMAL [None]
  - PYREXIA [None]
